FAERS Safety Report 14786040 (Version 4)
Quarter: 2022Q2

REPORT INFORMATION
  Report Type: Spontaneous
  Country: JP (occurrence: JP)
  Receive Date: 20180420
  Receipt Date: 20220406
  Transmission Date: 20220720
  Serious: Yes (Hospitalization)
  Sender: FDA-Public Use
  Company Number: JP-LUNDBECK-DKLU2047445

PATIENT
  Age: 12 Month
  Sex: Female
  Weight: 11.8 kg

DRUGS (16)
  1. SABRIL [Suspect]
     Active Substance: VIGABATRIN
     Indication: Infantile spasms
     Dosage: 250 MG, BID
     Route: 048
     Dates: start: 20170705, end: 20180116
  2. SABRIL [Suspect]
     Active Substance: VIGABATRIN
     Dosage: 250 MG, BID
     Route: 048
     Dates: start: 20170215, end: 20170227
  3. SABRIL [Suspect]
     Active Substance: VIGABATRIN
     Dosage: 375 MG, BID
     Route: 048
     Dates: start: 20170301, end: 20170509
  4. SABRIL [Suspect]
     Active Substance: VIGABATRIN
     Dosage: 300 MG, BID
     Route: 048
     Dates: start: 20170510, end: 20170704
  5. SABRIL [Suspect]
     Active Substance: VIGABATRIN
     Dosage: 175 MG, BID
     Route: 048
     Dates: start: 20180117, end: 20180306
  6. SABRIL [Suspect]
     Active Substance: VIGABATRIN
     Dosage: 100 MG, BID
     Route: 048
     Dates: start: 20180307, end: 20180524
  7. CLOBAZAM [Concomitant]
     Active Substance: CLOBAZAM
     Indication: Infantile spasms
     Dosage: 4 MG/DAY
     Route: 048
  8. LAMICTAL [Concomitant]
     Active Substance: LAMOTRIGINE
     Indication: Infantile spasms
     Dosage: 16 MG
     Route: 048
     Dates: end: 20171114
  9. LAMICTAL [Concomitant]
     Active Substance: LAMOTRIGINE
     Dosage: 12 MG/DAY
     Route: 048
     Dates: start: 20171115
  10. BIOTIN [Concomitant]
     Active Substance: BIOTIN
     Indication: Infantile spasms
     Dosage: 5 MG/DAY
     Route: 048
  11. CINAL [Concomitant]
     Indication: Infantile spasms
     Dosage: 1 G/DAY
     Route: 048
  12. FURSULTIAMINE [Concomitant]
     Active Substance: FURSULTIAMINE
     Indication: Infantile spasms
     Dosage: 100 MG/DAY
     Route: 048
  13. DIETARY SUPPLEMENT\UBIDECARENONE [Concomitant]
     Active Substance: DIETARY SUPPLEMENT\UBIDECARENONE
     Indication: Infantile spasms
     Dosage: 50 MG/DAY
     Route: 048
  14. VITAMIN E [Concomitant]
     Active Substance: .ALPHA.-TOCOPHEROL
     Indication: Infantile spasms
     Dosage: 100 MG/DAY
     Route: 048
  15. LEVOCARNITINE HYDROCHLORIDE [Concomitant]
     Active Substance: LEVOCARNITINE HYDROCHLORIDE
     Indication: Infantile spasms
     Dosage: 300 MG/DAY
     Route: 048
  16. LEVETIRACETAM [Concomitant]
     Active Substance: LEVETIRACETAM
     Indication: Infantile spasms
     Route: 065

REACTIONS (1)
  - Pharyngitis [Recovered/Resolved]

NARRATIVE: CASE EVENT DATE: 20170806
